FAERS Safety Report 12530713 (Version 2)
Quarter: 2016Q3

REPORT INFORMATION
  Report Type: Spontaneous
  Country: GB (occurrence: GB)
  Receive Date: 20160706
  Receipt Date: 20160718
  Transmission Date: 20161109
  Serious: Yes (Other)
  Sender: FDA-Public Use
  Company Number: GB-ELI_LILLY_AND_COMPANY-GB201606008243

PATIENT
  Age: 52 Year
  Sex: Female
  Weight: 63 kg

DRUGS (6)
  1. CITALOPRAM [Concomitant]
     Active Substance: CITALOPRAM HYDROBROMIDE
  2. TRULICITY [Suspect]
     Active Substance: DULAGLUTIDE
     Indication: DIABETES MELLITUS
     Dosage: UNK, UNKNOWN
     Route: 058
     Dates: start: 20160621
  3. ATORVASTATIN [Concomitant]
     Active Substance: ATORVASTATIN
  4. TRAMADOL. [Concomitant]
     Active Substance: TRAMADOL
  5. LANTUS [Concomitant]
     Active Substance: INSULIN GLARGINE
     Dosage: 35 U, UNKNOWN
     Route: 065
  6. ELLESTE-SOLO [Concomitant]

REACTIONS (4)
  - Palpitations [Unknown]
  - Blood glucose increased [Unknown]
  - Disturbance in attention [Unknown]
  - Cardiac flutter [Unknown]

NARRATIVE: CASE EVENT DATE: 20160622
